FAERS Safety Report 6928965-4 (Version None)
Quarter: 2010Q3

REPORT INFORMATION
  Report Type: 
  Country: None (occurrence: None)
  Receive Date: 20100817
  Receipt Date: 20100811
  Transmission Date: 20110219
  Serious: Yes (Other)
  Sender: FDA-Public Use
  Company Number: US-B.I. PHARMACEUTICALS,INC./RIDGEFIELD-2010-BP-09091BP

PATIENT
  Sex: Female

DRUGS (2)
  1. ZANTAC 75 [Suspect]
     Indication: HYPERCHLORHYDRIA
     Dosage: 300 MG
     Route: 048
     Dates: start: 20100810
  2. ZANTAC 75 [Suspect]
     Route: 048
     Dates: end: 20100810

REACTIONS (4)
  - CHEST DISCOMFORT [None]
  - CHEST PAIN [None]
  - ERUCTATION [None]
  - HYPERTENSION [None]
